FAERS Safety Report 8308532-0 (Version None)
Quarter: 2012Q2

REPORT INFORMATION
  Report Type: 
  Country: None (occurrence: None)
  Receive Date: 20120420
  Receipt Date: 20120410
  Transmission Date: 20120825
  Serious: Yes (Other)
  Sender: FDA-Public Use
  Company Number: 2012MA004823

PATIENT
  Age: 48 Year
  Sex: Female

DRUGS (7)
  1. ESTRADIOL [Concomitant]
  2. OTOMIZE [Concomitant]
  3. CANDESARTAN CILEXETIL [Concomitant]
  4. NORINYL 1+35 28-DAY [Concomitant]
  5. LOSARTAN POTASSIUM [Suspect]
     Dates: start: 20120126
  6. FELODIPINE [Concomitant]
  7. CONTRACEPTIVE [Concomitant]

REACTIONS (1)
  - SPIDER NAEVUS [None]
